APPROVED DRUG PRODUCT: FLUORODOPA F18
Active Ingredient: FLUORODOPA F-18
Strength: 1-40mCi/ML
Dosage Form/Route: SOLUTION;INTRAVENOUS
Application: N200655 | Product #001
Applicant: FEINSTEIN INSTITUTE MEDICAL RESEARCH
Approved: Oct 10, 2019 | RLD: Yes | RS: Yes | Type: RX